FAERS Safety Report 4306374-4 (Version None)
Quarter: 2004Q1

REPORT INFORMATION
  Report Type: 
  Country: None (occurrence: None)
  Receive Date: 20040225
  Receipt Date: 20030528
  Transmission Date: 20041129
  Serious: No
  Sender: FDA-Public Use
  Company Number: US-BRISTOL-MYERS SQUIBB COMPANY-12304259

PATIENT
  Age: 30 Year
  Sex: Female
  Weight: 63 kg

DRUGS (2)
  1. EXCEDRIN (MIGRAINE) [Suspect]
     Indication: HEADACHE
     Route: 048
     Dates: start: 20030527
  2. EXCEDRIN PM TABS [Suspect]
     Indication: INSOMNIA
     Route: 048
     Dates: start: 20030527

REACTIONS (3)
  - DIZZINESS [None]
  - INSOMNIA [None]
  - VAGINAL HAEMORRHAGE [None]
